FAERS Safety Report 16320823 (Version 1)
Quarter: 2019Q2

REPORT INFORMATION
  Report Type: Report from Study
  Country: None (occurrence: CO)
  Receive Date: 20190516
  Receipt Date: 20190516
  Transmission Date: 20190711
  Serious: Yes (Other)
  Sender: FDA-Public Use
  Company Number: CO-ABBVIE-19K-036-2728899-00

PATIENT
  Age: 31 Year
  Sex: Female
  Weight: 97 kg

DRUGS (2)
  1. HUMIRA [Suspect]
     Active Substance: ADALIMUMAB
     Indication: HIDRADENITIS
     Route: 058
     Dates: end: 20190311
  2. HUMIRA [Suspect]
     Active Substance: ADALIMUMAB
     Indication: HIDRADENITIS
     Route: 058
     Dates: start: 20170911

REACTIONS (7)
  - Female sterilisation [Recovering/Resolving]
  - Overweight [Recovered/Resolved]
  - Inflammation [Recovering/Resolving]
  - Salpingectomy [Recovered/Resolved]
  - Inflammation [Recovered/Resolved]
  - Groin pain [Recovered/Resolved]
  - Swelling [Recovering/Resolving]

NARRATIVE: CASE EVENT DATE: 20181214
